FAERS Safety Report 8152885-3 (Version None)
Quarter: 2012Q1

REPORT INFORMATION
  Report Type: 
  Country: None (occurrence: None)
  Receive Date: 20120221
  Receipt Date: 20120217
  Transmission Date: 20120608
  Serious: Yes (Death)
  Sender: FDA-Public Use
  Company Number: CN-SANOFI-AVENTIS-2012SA009913

PATIENT
  Age: 71 Year
  Sex: Male
  Weight: 70 kg

DRUGS (38)
  1. DOCETAXEL [Suspect]
     Route: 042
     Dates: start: 20120130, end: 20120131
  2. PREDNISONE [Concomitant]
     Route: 065
     Dates: start: 20120202
  3. PREDNISONE [Concomitant]
     Route: 065
     Dates: start: 20110722, end: 20110808
  4. PREDNISONE [Concomitant]
     Route: 065
     Dates: start: 20110923, end: 20111010
  5. PREDNISONE [Concomitant]
     Route: 065
     Dates: start: 20111014, end: 20111031
  6. PREDNISONE [Concomitant]
     Route: 065
     Dates: start: 20111104, end: 20111121
  7. DEXAMETHASONE [Concomitant]
     Route: 065
     Dates: start: 20110719, end: 20110721
  8. DIPHENHYDRAMINE HCL [Concomitant]
     Route: 030
     Dates: start: 20120131, end: 20120131
  9. ASCORBIC ACID [Concomitant]
     Route: 048
     Dates: start: 20120201, end: 20120201
  10. CISPLATIN [Suspect]
     Route: 042
     Dates: start: 20120131, end: 20120131
  11. DEXAMETHASONE [Concomitant]
     Route: 065
     Dates: start: 20110809, end: 20110811
  12. DEXAMETHASONE [Concomitant]
     Route: 065
     Dates: start: 20110830, end: 20110901
  13. DEXAMETHASONE [Concomitant]
     Route: 065
     Dates: start: 20110920, end: 20110922
  14. FAMOTIDINE [Concomitant]
     Route: 042
     Dates: start: 20120131, end: 20120131
  15. PREDNISONE [Concomitant]
     Route: 065
     Dates: start: 20111221, end: 20120108
  16. ALL OTHER THERAPEUTIC PRODUCTS [Concomitant]
     Route: 048
     Dates: start: 20120202, end: 20120202
  17. PREDNISONE [Concomitant]
     Route: 065
     Dates: start: 20110812, end: 20110829
  18. DEXAMETHASONE [Concomitant]
     Route: 065
     Dates: start: 20111101, end: 20111103
  19. PREDNISONE [Concomitant]
     Route: 065
     Dates: start: 20120112, end: 20120129
  20. ONDANSETRON [Concomitant]
     Route: 042
     Dates: start: 20120131, end: 20120131
  21. ONDANSETRON [Concomitant]
     Route: 042
     Dates: start: 20120201, end: 20120201
  22. POTASSIUM CHLORIDE [Concomitant]
     Route: 065
     Dates: start: 20120131, end: 20120131
  23. DIAZEPAM [Concomitant]
     Route: 048
     Dates: start: 20120202, end: 20120202
  24. DEXAMETHASONE [Concomitant]
     Route: 065
     Dates: start: 20111122, end: 20111124
  25. DEXAMETHASONE [Concomitant]
     Route: 065
     Dates: start: 20111218, end: 20111219
  26. DEXAMETHASONE [Concomitant]
     Route: 065
     Dates: start: 20111219, end: 20111220
  27. DEXAMETHASONE [Concomitant]
     Route: 065
     Dates: start: 20120130, end: 20120201
  28. CISPLATIN [Suspect]
     Route: 042
     Dates: start: 20111013, end: 20111013
  29. PREDNISONE [Concomitant]
     Route: 065
     Dates: start: 20111125, end: 20111217
  30. DEXAMETHASONE [Concomitant]
     Route: 065
     Dates: start: 20111011, end: 20111013
  31. DEXAMETHASONE [Concomitant]
     Route: 065
     Dates: start: 20120109, end: 20120111
  32. MECOBALAMIN [Concomitant]
     Route: 048
     Dates: start: 20120201, end: 20120201
  33. DIAZEPAM [Concomitant]
     Route: 048
     Dates: start: 20120131, end: 20120131
  34. ZOLEDRONIC ACID [Concomitant]
     Route: 065
     Dates: start: 20111219, end: 20120101
  35. DOCETAXEL [Suspect]
     Route: 042
     Dates: start: 20110720, end: 20110720
  36. PREDNISONE [Concomitant]
     Route: 065
     Dates: start: 20110902, end: 20110919
  37. MULTI-VITAMINS [Concomitant]
     Route: 048
     Dates: start: 20120201, end: 20120201
  38. FAMOTIDINE [Concomitant]
     Route: 042
     Dates: start: 20120201, end: 20120201

REACTIONS (1)
  - CARDIAC FAILURE [None]
